FAERS Safety Report 9306836 (Version 1)
Quarter: 2013Q1

REPORT INFORMATION
  Report Type: Spontaneous
  Country: GB (occurrence: None)
  Receive Date: 20130328
  Receipt Date: 20130328
  Transmission Date: 20140127
  Serious: Yes (Death, Hospitalization, Other)
  Sender: FDA-Public Use
  Company Number: 220745

PATIENT
  Age: 81 Year
  Sex: Female
  Weight: 68.2 kg

DRUGS (2)
  1. INNOHEP [Suspect]
     Indication: THROMBOSIS PROPHYLAXIS
     Route: 058
     Dates: start: 20110417, end: 20110501
  2. IBUPROFEN (IBUPROFEN) [Concomitant]

REACTIONS (6)
  - Intra-abdominal haemorrhage [None]
  - Accidental overdose [None]
  - Activated partial thromboplastin time prolonged [None]
  - Shock [None]
  - Haemoglobin abnormal [None]
  - Incorrect drug administration duration [None]
